FAERS Safety Report 6609297-0 (Version None)
Quarter: 2010Q1

REPORT INFORMATION
  Report Type: 
  Country: None (occurrence: None)
  Receive Date: 20100302
  Receipt Date: 20100219
  Transmission Date: 20100710
  Serious: No
  Sender: FDA-Public Use
  Company Number: US-B.I. PHARMACEUTICALS,INC./RIDGEFIELD-2010-BP-02051BP

PATIENT
  Sex: Female

DRUGS (3)
  1. ZANTAC 150 [Suspect]
     Indication: DYSPEPSIA
     Dosage: 300 MG
     Route: 048
     Dates: start: 20100217
  2. LEVOTHYROXINE [Concomitant]
     Indication: HYPOTHYROIDISM
     Dosage: 300 MCG
     Route: 048
     Dates: start: 20100111
  3. TOPAMAX [Concomitant]
     Indication: MIGRAINE
     Dosage: 50 MG
     Route: 048
     Dates: start: 20060101

REACTIONS (1)
  - DRUG INEFFECTIVE [None]
